FAERS Safety Report 6232513-4 (Version None)
Quarter: 2009Q2

REPORT INFORMATION
  Report Type: 
  Country: None (occurrence: None)
  Receive Date: 20090612
  Receipt Date: 20090529
  Transmission Date: 20091009
  Serious: Yes (Hospitalization)
  Sender: FDA-Public Use
  Company Number: 2009001619

PATIENT
  Age: 81 Year
  Sex: Male

DRUGS (16)
  1. ERLOTINIB (ERLOTINIB) (TABLET) [Suspect]
     Indication: NON-SMALL CELL LUNG CANCER
     Dosage: (150 MG, QD), ORAL
     Route: 048
     Dates: start: 20090430, end: 20090516
  2. RO 4858696/PLACEBO [Suspect]
     Dosage: (Q3W), INTRAVENOUS
     Route: 042
     Dates: start: 20090430
  3. COLCHICINE (COLCHICINE) [Concomitant]
  4. COMPRAZINE [Concomitant]
  5. ASPIRIN [Concomitant]
  6. FOSAMAX [Concomitant]
  7. LASIX [Concomitant]
  8. LISINOPRIL [Concomitant]
  9. LORAZEPAM [Concomitant]
  10. NORVASC [Concomitant]
  11. DOCUSATE SODIUM [Concomitant]
  12. PRAVASTATIN [Concomitant]
  13. GUAIFENESIN [Concomitant]
  14. INSULIN (INSULIN) [Concomitant]
  15. METOPROLOL TARTRATE [Concomitant]
  16. ASPIRIN [Concomitant]

REACTIONS (9)
  - BLOOD GLUCOSE INCREASED [None]
  - BLOOD SODIUM DECREASED [None]
  - CELLULITIS [None]
  - DEEP VEIN THROMBOSIS [None]
  - DEHYDRATION [None]
  - HYPERSENSITIVITY [None]
  - HYPOPHAGIA [None]
  - PNEUMONIA ASPIRATION [None]
  - RENAL FAILURE [None]
